FAERS Safety Report 15737801 (Version 1)
Quarter: 2018Q4

REPORT INFORMATION
  Report Type: Spontaneous
  Country: GB (occurrence: GB)
  Receive Date: 20181219
  Receipt Date: 20181219
  Transmission Date: 20190205
  Serious: Yes (Other)
  Sender: FDA-Public Use
  Company Number: GB-TEVA-2018-GB-988091

PATIENT
  Age: 80 Year
  Sex: Female
  Weight: 76.2 kg

DRUGS (8)
  1. OMEPRAZOLE. [Concomitant]
     Active Substance: OMEPRAZOLE
     Dosage: 20 MG
     Route: 065
  2. CETIRIZINE DIHYDROCHLORIDE [Concomitant]
     Active Substance: CETIRIZINE HYDROCHLORIDE
     Route: 065
  3. XARELTO [Concomitant]
     Active Substance: RIVAROXABAN
     Dosage: 15 MG
     Route: 065
  4. BENDROFLUMETHIAZIDE [Concomitant]
     Active Substance: BENDROFLUMETHIAZIDE
     Dosage: STOPPED
     Route: 065
  5. BISOPROLOL FUMARATE. [Suspect]
     Active Substance: BISOPROLOL FUMARATE
     Indication: ARRHYTHMIA
     Dosage: UP TO 5MG
     Route: 048
     Dates: start: 20180322
  6. FLUTICASONE. [Concomitant]
     Active Substance: FLUTICASONE
     Route: 045
  7. PREMARIN [Concomitant]
     Active Substance: ESTROGENS, CONJUGATED
     Dosage: 1.25 MG
     Route: 065
  8. ALVERINE CITRATE [Concomitant]
     Active Substance: ALVERINE CITRATE
     Dosage: 60 MG
     Route: 065

REACTIONS (6)
  - Wheezing [Unknown]
  - Lower respiratory tract infection [Unknown]
  - Seasonal allergy [Not Recovered/Not Resolved]
  - Condition aggravated [Not Recovered/Not Resolved]
  - Rhinorrhoea [Not Recovered/Not Resolved]
  - Bronchitis [Unknown]

NARRATIVE: CASE EVENT DATE: 20180505
